FAERS Safety Report 13915708 (Version 1)
Quarter: 2017Q3

REPORT INFORMATION
  Report Type: Spontaneous
  Country: US (occurrence: US)
  Receive Date: 20170829
  Receipt Date: 20170829
  Transmission Date: 20171127
  Serious: No
  Sender: FDA-Public Use
  Company Number: US-TEVA-800173ACC

PATIENT
  Sex: Female

DRUGS (5)
  1. VITAMIN D [Concomitant]
     Active Substance: CHOLECALCIFEROL
  2. OXYBUTYNIN [Concomitant]
     Active Substance: OXYBUTYNIN
  3. VITAMIN B [Concomitant]
     Active Substance: VITAMIN B
  4. COPAXONE [Suspect]
     Active Substance: GLATIRAMER ACETATE
     Indication: MULTIPLE SCLEROSIS
     Dosage: PFS
     Dates: start: 20161108
  5. TAMOXIFEN [Concomitant]
     Active Substance: TAMOXIFEN

REACTIONS (2)
  - Muscle contracture [Not Recovered/Not Resolved]
  - Gait disturbance [Not Recovered/Not Resolved]
